FAERS Safety Report 21018805 (Version 3)
Quarter: 2022Q3

REPORT INFORMATION
  Report Type: Spontaneous
  Country: US (occurrence: US)
  Receive Date: 20220628
  Receipt Date: 20220801
  Transmission Date: 20221027
  Serious: No
  Sender: FDA-Public Use
  Company Number: US-BRISTOL-MYERS SQUIBB COMPANY-2022-060557

PATIENT
  Age: 67 Year
  Sex: Male
  Weight: 75.7 kg

DRUGS (2)
  1. REVLIMID [Suspect]
     Active Substance: LENALIDOMIDE
     Indication: Plasma cell myeloma
     Dosage: EVERY OTHER DAY X 21 DAYS ON AND 7 DAYS ?OFF
     Route: 048
     Dates: start: 20220503, end: 20220621
  2. REVLIMID [Suspect]
     Active Substance: LENALIDOMIDE
     Dosage: DAILY X 21 DAYS ON AND 7 DAYS OFF
     Route: 048
     Dates: start: 20220503

REACTIONS (14)
  - Taste disorder [Not Recovered/Not Resolved]
  - White blood cell count decreased [Recovering/Resolving]
  - Rash [Recovering/Resolving]
  - Pruritus [Recovering/Resolving]
  - Dehydration [Recovering/Resolving]
  - Heart rate increased [Recovered/Resolved]
  - Mood swings [Recovering/Resolving]
  - Blood potassium [Recovering/Resolving]
  - Multiple allergies [Recovering/Resolving]
  - Energy increased [Recovering/Resolving]
  - Muscle spasms [Not Recovered/Not Resolved]
  - Hypotension [Unknown]
  - Decreased appetite [Not Recovered/Not Resolved]
  - Laboratory test abnormal [Not Recovered/Not Resolved]

NARRATIVE: CASE EVENT DATE: 20220621
